FAERS Safety Report 4971591-7 (Version None)
Quarter: 2006Q2

REPORT INFORMATION
  Report Type: 
  Country: None (occurrence: None)
  Receive Date: 20060407
  Receipt Date: 20060327
  Transmission Date: 20061013
  Serious: Yes (Other)
  Sender: FDA-Public Use
  Company Number: 2005124015

PATIENT
  Age: 52 Year
  Sex: Female
  Weight: 68.0396 kg

DRUGS (1)
  1. ROGAINE [Suspect]
     Indication: HYPOTRICHOSIS
     Dosage: 1 ML TWICE DAILY, TOPICAL
     Route: 061
     Dates: start: 20050701, end: 20050801

REACTIONS (7)
  - ALOPECIA [None]
  - ASTHENIA [None]
  - CHEST PAIN [None]
  - DIZZINESS [None]
  - DYSPNOEA [None]
  - HAIR TEXTURE ABNORMAL [None]
  - PALPITATIONS [None]
